FAERS Safety Report 23467514 (Version 1)
Quarter: 2024Q1

REPORT INFORMATION
  Report Type: Spontaneous
  Country: US (occurrence: US)
  Receive Date: 20240201
  Receipt Date: 20240201
  Transmission Date: 20240410
  Serious: No
  Sender: FDA-Public Use
  Company Number: US-INCYTE CORPORATION-2024IN000465

PATIENT

DRUGS (1)
  1. OPZELURA [Suspect]
     Active Substance: RUXOLITINIB PHOSPHATE
     Indication: Vitiligo
     Dosage: UNK
     Route: 065
     Dates: start: 202311

REACTIONS (4)
  - Fall [Unknown]
  - Inappropriate schedule of product administration [Unknown]
  - Product dose omission in error [Unknown]
  - Drug ineffective [Unknown]
